FAERS Safety Report 18413074 (Version 1)
Quarter: 2020Q4

REPORT INFORMATION
  Report Type: Report from Study
  Country: IT (occurrence: IT)
  Receive Date: 20201022
  Receipt Date: 20201022
  Transmission Date: 20210114
  Serious: Yes (Hospitalization)
  Sender: FDA-Public Use
  Company Number: IT-TEVA-2020-IT-1840288

PATIENT
  Age: 79 Year
  Sex: Female

DRUGS (2)
  1. PREDNISONE. [Suspect]
     Active Substance: PREDNISONE
     Indication: RASH
     Dosage: 1 DF, THERAPEUTIC ERROR
     Route: 048
     Dates: start: 20200809, end: 20200813
  2. IMPETEX [Suspect]
     Active Substance: CHLORQUINALDOL\DIFLUCORTOLONE
     Indication: RASH
     Dosage: 1 DF
     Route: 003
     Dates: start: 20200809, end: 20200813

REACTIONS (3)
  - Rash erythematous [Recovering/Resolving]
  - Rash [Recovering/Resolving]
  - Multiple injuries [Recovering/Resolving]

NARRATIVE: CASE EVENT DATE: 20200809
